FAERS Safety Report 17256673 (Version 2)
Quarter: 2020Q2

REPORT INFORMATION
  Report Type: Spontaneous
  Country: FR (occurrence: FR)
  Receive Date: 20200110
  Receipt Date: 20200608
  Transmission Date: 20200713
  Serious: Yes (Other)
  Sender: FDA-Public Use
  Company Number: FR-NOVOPROD-705302

PATIENT
  Age: 50 Year
  Sex: Male
  Weight: 70 kg

DRUGS (4)
  1. LANTUS [Concomitant]
     Active Substance: INSULIN GLARGINE
     Indication: PRODUCT USED FOR UNKNOWN INDICATION
     Dosage: 14 IU, QD (MORNING)
     Route: 058
  2. NOVORAPID [Suspect]
     Active Substance: INSULIN ASPART
     Dosage: 20 IU, TID( IN MORNING, AT NOON AND IN EVENING)
     Route: 065
     Dates: start: 20191216
  3. NOVORAPID [Suspect]
     Active Substance: INSULIN ASPART
     Indication: TYPE 1 DIABETES MELLITUS
     Dosage: 20 IU, TID( IN MORNING, AT NOON AND IN EVENING)
     Route: 065
     Dates: start: 2012
  4. NOVORAPID [Suspect]
     Active Substance: INSULIN ASPART
     Dosage: NEW BATCH
     Route: 065
     Dates: start: 201912, end: 20191220

REACTIONS (2)
  - Angioedema [Recovering/Resolving]
  - Product quality issue [Unknown]

NARRATIVE: CASE EVENT DATE: 20191216
